FAERS Safety Report 6015492-4 (Version None)
Quarter: 2008Q4

REPORT INFORMATION
  Report Type: 
  Country: None (occurrence: None)
  Receive Date: 20081222
  Receipt Date: 20081217
  Transmission Date: 20090506
  Serious: Yes (Hospitalization)
  Sender: FDA-Public Use
  Company Number: US-KINGPHARMUSA00001-K200801332

PATIENT
  Age: 84 Year
  Sex: Female

DRUGS (8)
  1. ALTACE [Suspect]
     Indication: HYPERTENSION
     Dosage: 5 MG, QD
     Route: 048
     Dates: end: 20080930
  2. KARDEGIC                           /00002703/ [Concomitant]
     Dosage: 160 MG, QD
     Route: 048
  3. STRUCTUM                           /02117803/ [Concomitant]
     Indication: OSTEOARTHRITIS
     Dosage: 1000 MG, QD
     Route: 048
  4. ZANIDIP [Concomitant]
     Indication: HYPERTENSION
     Dosage: 20 MG, QD
     Route: 048
  5. FLUDEX                             /00340101/ [Concomitant]
     Indication: HYPERTENSION
     Dosage: 1.5 MG, QD
     Route: 048
  6. TANGANIL                           /00129601/ [Concomitant]
     Indication: DIZZINESS
     Dosage: 1500 MG, QD
     Route: 048
  7. ELISOR [Concomitant]
     Indication: DYSLIPIDAEMIA
     Dosage: 20 MG, QD
     Route: 048
  8. DOLIPRANE [Concomitant]
     Dosage: 500 MG/BAG, 6 BAGS DAILY
     Route: 048

REACTIONS (4)
  - CARDIAC MURMUR [None]
  - DISCOMFORT [None]
  - LIP SWELLING [None]
  - SWELLING FACE [None]
